FAERS Safety Report 6868830-4 (Version None)
Quarter: 2010Q3

REPORT INFORMATION
  Report Type: 
  Country: None (occurrence: None)
  Receive Date: 20100722
  Receipt Date: 20080619
  Transmission Date: 20110219
  Serious: No
  Sender: FDA-Public Use
  Company Number: US-PFIZER INC-2008052965

PATIENT
  Sex: Female

DRUGS (3)
  1. CHANTIX [Suspect]
  2. ANTIHYPERTENSIVES [Concomitant]
  3. CHOLESTEROL- AND TRIGLYCERIDE REDUCERS [Concomitant]

REACTIONS (4)
  - ABNORMAL DREAMS [None]
  - COUGH [None]
  - DRY MOUTH [None]
  - THROAT IRRITATION [None]
